FAERS Safety Report 22104017 (Version 7)
Quarter: 2024Q1

REPORT INFORMATION
  Report Type: Report from Study
  Country: US (occurrence: US)
  Receive Date: 20230316
  Receipt Date: 20240328
  Transmission Date: 20240409
  Serious: Yes (Hospitalization, Congenital Anomaly, Other)
  Sender: FDA-Public Use
  Company Number: US-PFIZER INC-2022BHV003165

PATIENT
  Sex: Male
  Weight: 2.855 kg

DRUGS (10)
  1. NURTEC ODT [Suspect]
     Active Substance: RIMEGEPANT SULFATE
     Indication: Migraine
     Dosage: 75 MG, EVERY OTHER DAY (QOD)
     Route: 064
     Dates: start: 202108, end: 202202
  2. NURTEC ODT [Suspect]
     Active Substance: RIMEGEPANT SULFATE
     Dosage: 75 MG, AS NEEDED (PRN)
     Route: 064
     Dates: start: 20220210
  3. TYLENOL EXTRA STRENGTH [Suspect]
     Active Substance: ACETAMINOPHEN
     Indication: Migraine
     Dosage: 1000 MG, AS NEEDED
     Route: 064
     Dates: start: 202202
  4. ACETAMINOPHEN [Concomitant]
     Active Substance: ACETAMINOPHEN
     Indication: Migraine
     Dosage: 1000 MG, AS NEEDED
     Route: 064
     Dates: start: 20220804
  5. LEXAPRO [Concomitant]
     Active Substance: ESCITALOPRAM OXALATE
     Indication: Anxiety
     Dosage: 20 MG, 1X/DAY
     Route: 064
  6. LEXAPRO [Concomitant]
     Active Substance: ESCITALOPRAM OXALATE
     Indication: Depression
  7. MINERALS\VITAMINS [Concomitant]
     Active Substance: MINERALS\VITAMINS
     Indication: Supplementation therapy
     Dosage: 1 DF, 1X/DAY
     Route: 064
  8. PRILOSEC [Concomitant]
     Active Substance: OMEPRAZOLE MAGNESIUM
     Indication: Gastrooesophageal reflux disease
     Dosage: 40 MG, 1X/DAY
     Route: 064
     Dates: start: 20220518
  9. ALBUTEROL [Concomitant]
     Active Substance: ALBUTEROL
     Indication: Cough
     Dosage: 2 PUFFS
     Route: 064
     Dates: start: 20220907, end: 20220919
  10. ALBUTEROL [Concomitant]
     Active Substance: ALBUTEROL
     Indication: Wheezing

REACTIONS (4)
  - Maternal exposure during pregnancy [Not Recovered/Not Resolved]
  - Umbilical cord abnormality [Recovered/Resolved]
  - Fallot^s tetralogy [Recovering/Resolving]
  - Renal dysplasia [Not Recovered/Not Resolved]

NARRATIVE: CASE EVENT DATE: 20220101
